FAERS Safety Report 12631474 (Version 2)
Quarter: 2016Q3

REPORT INFORMATION
  Report Type: Spontaneous
  Country: US (occurrence: US)
  Receive Date: 20160808
  Receipt Date: 20160808
  Transmission Date: 20161109
  Serious: No
  Sender: FDA-Public Use
  Company Number: US-BEH-2015054098

PATIENT
  Sex: Female
  Weight: 119 kg

DRUGS (18)
  1. DEXAMETHASONE. [Concomitant]
     Active Substance: DEXAMETHASONE
  2. ZANTAC [Concomitant]
     Active Substance: RANITIDINE HYDROCHLORIDE
  3. ACYCLOVIR. [Concomitant]
     Active Substance: ACYCLOVIR
  4. ZAVESCA [Concomitant]
     Active Substance: MIGLUSTAT
  5. HIZENTRA [Suspect]
     Active Substance: HUMAN IMMUNOGLOBULIN G
     Route: 058
  6. ACETAMINOPHEN. [Concomitant]
     Active Substance: ACETAMINOPHEN
  7. MULTIVITAMIN [Concomitant]
     Active Substance: VITAMINS
  8. ENBREL [Concomitant]
     Active Substance: ETANERCEPT
  9. DIPHENHYDRAMINE. [Concomitant]
     Active Substance: DIPHENHYDRAMINE
  10. EPIPEN [Concomitant]
     Active Substance: EPINEPHRINE
     Indication: ANAPHYLACTIC REACTION
  11. HIZENTRA [Suspect]
     Active Substance: HUMAN IMMUNOGLOBULIN G
     Indication: IMMUNODEFICIENCY COMMON VARIABLE
     Route: 058
  12. CORAL CALCIUM [Concomitant]
  13. MAXALT [Concomitant]
     Active Substance: RIZATRIPTAN BENZOATE
  14. ADVIL [Concomitant]
     Active Substance: IBUPROFEN
  15. VITAMIN D [Concomitant]
     Active Substance: CHOLECALCIFEROL
  16. ALVESCO [Concomitant]
     Active Substance: CICLESONIDE
  17. LMX [Concomitant]
     Active Substance: LIDOCAINE
  18. DOXYCYCLINE. [Concomitant]
     Active Substance: DOXYCYCLINE

REACTIONS (3)
  - Nausea [Unknown]
  - Headache [Unknown]
  - Sinusitis [Unknown]
